FAERS Safety Report 20768521 (Version 1)
Quarter: 2022Q2

REPORT INFORMATION
  Report Type: Spontaneous
  Country: US (occurrence: None)
  Receive Date: 20220428
  Receipt Date: 20220428
  Transmission Date: 20220721
  Serious: No
  Sender: FDA-Public Use
  Company Number: None

PATIENT
  Age: 58 Year
  Sex: Female
  Weight: 76.2 kg

DRUGS (1)
  1. BEBTELOVIMAB [Suspect]
     Active Substance: BEBTELOVIMAB
     Dosage: FREQUENCY : ONCE;?
     Route: 040
     Dates: start: 20220427, end: 20220427

REACTIONS (4)
  - Dizziness [None]
  - Chest pain [None]
  - Chest discomfort [None]
  - Injection related reaction [None]

NARRATIVE: CASE EVENT DATE: 20220427
